FAERS Safety Report 9991796 (Version 1)
Quarter: 2014Q1

REPORT INFORMATION
  Report Type: Report from Study
  Country: JP (occurrence: JP)
  Receive Date: 20140310
  Receipt Date: 20140310
  Transmission Date: 20141002
  Serious: Yes (Death, Life-Threatening, Hospitalization)
  Sender: FDA-Public Use
  Company Number: JP-SA-2014SA027579

PATIENT
  Age: 13 Year
  Sex: Male
  Weight: 37.7 kg

DRUGS (31)
  1. THYMOGLOBULINE [Suspect]
     Indication: BONE MARROW CONDITIONING REGIMEN
     Route: 042
     Dates: start: 20121112, end: 20121112
  2. ZETBULIN [Suspect]
     Indication: PRODUCT USED FOR UNKNOWN INDICATION
     Route: 065
  3. CICLOSPORIN [Suspect]
     Indication: PRODUCT USED FOR UNKNOWN INDICATION
     Route: 065
  4. URSO [Concomitant]
     Indication: PROPHYLAXIS
     Dates: start: 20121107, end: 20121117
  5. CALONAL [Concomitant]
     Indication: FUNGAL INFECTION
     Dates: start: 20121106, end: 20121117
  6. CALONAL [Concomitant]
     Indication: SEPSIS
     Dates: start: 20121106, end: 20121117
  7. AMIKACIN [Concomitant]
     Indication: SEPSIS
     Dates: start: 20121111, end: 20121117
  8. AMBISOME [Concomitant]
     Indication: INFECTION PROPHYLAXIS
     Dates: start: 20120912, end: 20121116
  9. AMBISOME [Concomitant]
     Indication: FUNGAL INFECTION
     Dates: start: 20120912, end: 20121116
  10. FUNGUARD [Concomitant]
     Indication: INFECTION PROPHYLAXIS
     Dates: start: 20120829, end: 20121117
  11. FUNGUARD [Concomitant]
     Indication: FUNGAL INFECTION
     Dates: start: 20120829, end: 20121117
  12. MEROPEN [Concomitant]
     Indication: SEPSIS
     Dates: start: 20121111, end: 20121117
  13. LASIX [Concomitant]
     Indication: FLUID RETENTION
     Dates: start: 20121109, end: 20121117
  14. VANCOMYCIN [Concomitant]
     Indication: SEPSIS
     Dates: start: 20121111, end: 20121117
  15. PROGRAF [Concomitant]
     Indication: PROPHYLAXIS AGAINST GRAFT VERSUS HOST DISEASE
     Dates: start: 20121112, end: 20121114
  16. OXYCONTIN [Concomitant]
     Indication: SEDATION
     Dates: start: 20121112, end: 20121114
  17. ACYCLOVIR [Concomitant]
     Indication: INFECTION PROPHYLAXIS
     Dates: start: 20121107, end: 20121114
  18. VENILON [Concomitant]
     Indication: SEPSIS
     Dates: start: 20121111, end: 20121112
  19. SOL-MELCORT [Concomitant]
     Indication: PROPHYLAXIS AGAINST GRAFT VERSUS HOST DISEASE
     Dates: start: 20121112, end: 20121117
  20. ATARAX-P [Concomitant]
     Indication: TRANSFUSION
     Dates: start: 20121112, end: 20121114
  21. GASTER [Concomitant]
     Indication: PROPHYLAXIS
     Dates: start: 20121113, end: 20121113
  22. FENTANYL [Concomitant]
     Indication: PAIN
     Dates: start: 20121112, end: 20121117
  23. FENTANYL [Concomitant]
     Indication: SEDATION
     Dates: start: 20121112, end: 20121117
  24. DALTEPARIN SODIUM [Concomitant]
     Indication: PROPHYLAXIS
     Dates: start: 20121107, end: 20121117
  25. NEU-UP [Concomitant]
     Indication: APLASTIC ANAEMIA
     Dates: start: 20121115, end: 20121116
  26. ALL OTHER THERAPEUTIC PRODUCTS [Concomitant]
     Indication: PROPHYLAXIS
     Dates: start: 20121114, end: 20121114
  27. DORMICUM [Concomitant]
     Indication: SEDATION
     Dates: start: 20121115, end: 20121116
  28. OMEPRAL [Concomitant]
     Indication: GASTRITIS PROPHYLAXIS
     Dates: start: 20121117, end: 20121117
  29. OXINORM [Concomitant]
     Indication: PAIN
     Dates: start: 20121114, end: 20121115
  30. DEXART [Concomitant]
     Indication: PROPHYLAXIS
     Dates: start: 20121114, end: 20121114
  31. TAKEPRON [Concomitant]
     Indication: GASTRITIS PROPHYLAXIS
     Dates: start: 20121107, end: 20121114

REACTIONS (7)
  - Hypoxia [Not Recovered/Not Resolved]
  - Cardiac tamponade [Not Recovered/Not Resolved]
  - Metabolic acidosis [Not Recovered/Not Resolved]
  - Peripheral circulatory failure [Not Recovered/Not Resolved]
  - Hyperkalaemia [Not Recovered/Not Resolved]
  - Anaphylactic shock [Recovering/Resolving]
  - Cystitis haemorrhagic [Not Recovered/Not Resolved]
